FAERS Safety Report 11502730 (Version 3)
Quarter: 2015Q4

REPORT INFORMATION
  Report Type: Spontaneous
  Country: US (occurrence: US)
  Receive Date: 20150914
  Receipt Date: 20151009
  Transmission Date: 20160304
  Serious: Yes (Disabling, Other)
  Sender: FDA-Public Use
  Company Number: US-ASTELLAS-2015US028480

PATIENT
  Age: 71 Year
  Sex: Male

DRUGS (3)
  1. AVODART [Concomitant]
     Active Substance: DUTASTERIDE
     Indication: PRODUCT USED FOR UNKNOWN INDICATION
     Route: 048
  2. XTANDI [Suspect]
     Active Substance: ENZALUTAMIDE
     Indication: PROSTATE CANCER
     Route: 048
     Dates: start: 20140910, end: 20150609
  3. TERAZOSIN HCL [Concomitant]
     Active Substance: TERAZOSIN HYDROCHLORIDE
     Indication: PRODUCT USED FOR UNKNOWN INDICATION
     Route: 048

REACTIONS (6)
  - Arthralgia [Not Recovered/Not Resolved]
  - Abasia [Not Recovered/Not Resolved]
  - Neuropathic muscular atrophy [Unknown]
  - Limb discomfort [Unknown]
  - Muscular weakness [Recovering/Resolving]
  - Prostatic specific antigen increased [Unknown]

NARRATIVE: CASE EVENT DATE: 20141104
